FAERS Safety Report 8810740 (Version 1)
Quarter: 2012Q4

REPORT INFORMATION
  Report Type: 
  Country: US (occurrence: US)
  Receive Date: 20120927
  Receipt Date: 20120927
  Transmission Date: 20130627
  Serious: Yes (Hospitalization)
  Sender: FDA-Public Use
  Company Number: US-JNJFOC-20110812455

PATIENT
  Age: 73 Year
  Sex: Female

DRUGS (1)
  1. EXTRA STRENGTH TYLENOL [Suspect]
     Indication: HEADACHE
     Route: 048
     Dates: start: 20110718, end: 20110718

REACTIONS (4)
  - Transient ischaemic attack [Unknown]
  - Vomiting [Recovered/Resolved]
  - Expired drug administered [Unknown]
  - Product quality issue [Unknown]
